FAERS Safety Report 9701307 (Version 1)
Quarter: 2013Q4

REPORT INFORMATION
  Report Type: Spontaneous
  Country: US (occurrence: US)
  Receive Date: 20131121
  Receipt Date: 20131121
  Transmission Date: 20140711
  Serious: No
  Sender: FDA-Public Use
  Company Number: US-GILEAD-2008-0016417

PATIENT
  Age: 55 Year
  Sex: Female

DRUGS (5)
  1. LETAIRIS [Suspect]
     Indication: PULMONARY ARTERIAL HYPERTENSION
     Route: 048
     Dates: start: 20071107, end: 20080510
  2. LASIX [Concomitant]
     Indication: OEDEMA
     Route: 048
  3. KCLOR [Concomitant]
     Indication: HYPOKALAEMIA
     Route: 048
  4. LEVOTHYROXINE [Concomitant]
     Indication: HYPOTHYROIDISM
     Route: 048
  5. WARFARIN [Concomitant]
     Indication: PULMONARY EMBOLISM
     Route: 048
     Dates: start: 2006

REACTIONS (1)
  - Nasal congestion [Recovered/Resolved]
